FAERS Safety Report 18065856 (Version 1)
Quarter: 2020Q3

REPORT INFORMATION
  Report Type: Spontaneous
  Country: US (occurrence: US)
  Receive Date: 20200724
  Receipt Date: 20200724
  Transmission Date: 20201103
  Serious: Yes (Other)
  Sender: FDA-Public Use
  Company Number: None

PATIENT
  Age: 57 Year
  Sex: Female
  Weight: 79.5 kg

DRUGS (17)
  1. DAPSONE. [Concomitant]
     Active Substance: DAPSONE
     Dates: start: 20200525
  2. HEPARIN [Concomitant]
     Active Substance: HEPARIN SODIUM
     Dates: start: 20200523
  3. AMPHOTERICIN B LIPOSOME [Concomitant]
     Active Substance: AMPHOTERICIN B
     Dates: start: 20200524
  4. IPRATROPIUM [Concomitant]
     Active Substance: IPRATROPIUM
     Dates: start: 20200524
  5. VORICONAZOLE. [Concomitant]
     Active Substance: VORICONAZOLE
     Dates: start: 20200604, end: 20200608
  6. VALGANCICLOVIR. [Concomitant]
     Active Substance: VALGANCICLOVIR
     Dates: start: 20200524
  7. LEVOTHYROXINE. [Concomitant]
     Active Substance: LEVOTHYROXINE
     Dates: start: 20200524
  8. MIDODRINE [Concomitant]
     Active Substance: MIDODRINE
     Dates: start: 20200607
  9. PANTOPRAZOLE [Concomitant]
     Active Substance: PANTOPRAZOLE
     Dates: start: 20200602, end: 20200612
  10. MYCOPHENOLATE [Concomitant]
     Active Substance: MYCOPHENOLIC ACID
     Dates: start: 20200602, end: 20200610
  11. TACROLIMUS. [Concomitant]
     Active Substance: TACROLIMUS
     Dates: start: 20200524
  12. CEFEPIME [Suspect]
     Active Substance: CEFEPIME HYDROCHLORIDE
     Indication: PNEUMONIA ASPIRATION
     Route: 042
     Dates: start: 20200602, end: 20200609
  13. INSULIN ASPART [Concomitant]
     Active Substance: INSULIN ASPART
     Dates: start: 20200521
  14. FAMOTIDINE. [Concomitant]
     Active Substance: FAMOTIDINE
     Dates: start: 20200602
  15. FLUOCINONIDE. [Concomitant]
     Active Substance: FLUOCINONIDE
     Dates: start: 20200528
  16. ACETAMINOPHEN. [Concomitant]
     Active Substance: ACETAMINOPHEN
     Dates: start: 20200524
  17. PREDNISONE. [Concomitant]
     Active Substance: PREDNISONE
     Dates: start: 20200521

REACTIONS (6)
  - Azotaemia [None]
  - Therapy cessation [None]
  - Neurotoxicity [None]
  - Hyperammonaemia [None]
  - Drug hypersensitivity [None]
  - Encephalopathy [None]

NARRATIVE: CASE EVENT DATE: 20200608
